FAERS Safety Report 9945281 (Version 1)
Quarter: 2014Q1

REPORT INFORMATION
  Report Type: Report from Study
  Country: US (occurrence: US)
  Receive Date: 20140303
  Receipt Date: 20140303
  Transmission Date: 20141002
  Serious: No
  Sender: FDA-Public Use
  Company Number: US-ABBVIE-13P-163-1050761-00

PATIENT
  Age: 42 Year
  Sex: Female

DRUGS (1)
  1. HUMIRA [Suspect]
     Indication: PSORIASIS
     Dosage: USED 1 PACKAGE THEN 1 PEN FROM THE NEXT PACKAGE
     Dates: start: 20120825, end: 20120901

REACTIONS (1)
  - Drug ineffective [Not Recovered/Not Resolved]
